FAERS Safety Report 23245952 (Version 2)
Quarter: 2023Q4

REPORT INFORMATION
  Report Type: Spontaneous
  Country: CN (occurrence: CN)
  Receive Date: 20231130
  Receipt Date: 20231205
  Transmission Date: 20240109
  Serious: Yes (Life-Threatening, Hospitalization, Other)
  Sender: FDA-Public Use
  Company Number: CN-MLMSERVICE-20231110-4655127-1

PATIENT
  Age: 54 Year
  Sex: Female
  Weight: 64 kg

DRUGS (14)
  1. LIDOCAINE [Suspect]
     Active Substance: LIDOCAINE
     Indication: Local anaesthesia
     Route: 065
  2. MIDAZOLAM [Suspect]
     Active Substance: MIDAZOLAM
     Indication: Maintenance of anaesthesia
     Dosage: 0.05 MG/KG
     Route: 042
  3. ROCURONIUM BROMIDE [Suspect]
     Active Substance: ROCURONIUM BROMIDE
     Indication: Maintenance of anaesthesia
     Dosage: 0.6 MG/KG
     Route: 042
  4. REMIFENTANIL [Suspect]
     Active Substance: REMIFENTANIL
     Indication: Maintenance of anaesthesia
     Dosage: 0.1 UG/KG, QMN
     Route: 065
  5. REMIFENTANIL [Suspect]
     Active Substance: REMIFENTANIL
     Dosage: 0.2 UG/KG, QMN
     Route: 065
  6. SEVOFLURANE [Suspect]
     Active Substance: SEVOFLURANE
     Indication: Maintenance of anaesthesia
     Dosage: 1% TO 2%
     Route: 055
  7. PROPOFOL [Suspect]
     Active Substance: PROPOFOL
     Indication: Maintenance of anaesthesia
     Dosage: 0.1 MG/KG, QMN
     Route: 042
  8. PROPOFOL [Suspect]
     Active Substance: PROPOFOL
     Dosage: 0.06 MG/KG, QMN
     Route: 042
  9. PROPOFOL [Suspect]
     Active Substance: PROPOFOL
     Dosage: 2MG/KG
     Route: 042
  10. SUFENTANIL [Suspect]
     Active Substance: SUFENTANIL
     Indication: Maintenance of anaesthesia
     Dosage: 0.4UG/KG
     Route: 042
  11. NEOSTIGMINE [Concomitant]
     Active Substance: NEOSTIGMINE
     Indication: Product used for unknown indication
     Dosage: 1 MG
     Route: 065
  12. DEXMEDETOMIDINE [Concomitant]
     Active Substance: DEXMEDETOMIDINE
     Indication: Product used for unknown indication
     Dosage: 0.3 UG/KG, QH, PUMPED CONTINOUSLY
     Route: 042
  13. ATROPINE [Concomitant]
     Active Substance: ATROPINE\ATROPINE SULFATE
     Indication: Product used for unknown indication
     Dosage: 0.5MG
     Route: 065
  14. SODIUM CHLORIDE [Concomitant]
     Active Substance: SODIUM CHLORIDE
     Indication: Product used for unknown indication
     Route: 042

REACTIONS (3)
  - Dyspnoea [Recovering/Resolving]
  - Airway complication of anaesthesia [Recovering/Resolving]
  - Dysphagia [Recovering/Resolving]
